FAERS Safety Report 6367985-8 (Version None)
Quarter: 2009Q3

REPORT INFORMATION
  Report Type: 
  Country: None (occurrence: None)
  Receive Date: 20090922
  Receipt Date: 20090916
  Transmission Date: 20100115
  Serious: Yes (Death)
  Sender: FDA-Public Use
  Company Number: IT-JNJFOC-20090905078

PATIENT

DRUGS (11)
  1. CAELYX [Suspect]
     Indication: MULTIPLE MYELOMA
     Dosage: 6 CYCLES
     Route: 042
  2. BORTEZOMIB [Suspect]
     Dosage: 3 CYCLES, CONSOLIDATION THERAPY DAYS 1, 8
     Route: 065
  3. BORTEZOMIB [Suspect]
     Indication: MULTIPLE MYELOMA
     Dosage: 6 CYCLES
     Route: 065
  4. THALIDOMIDE [Suspect]
     Dosage: FOR 28 DAYS
     Route: 065
  5. THALIDOMIDE [Suspect]
     Indication: MULTIPLE MYELOMA
     Route: 065
  6. DEXAMETHASONE [Suspect]
     Dosage: ON DAY 1-2, 8-9
     Route: 065
  7. DEXAMETHASONE [Suspect]
     Indication: MULTIPLE MYELOMA
     Dosage: ON DAYS 1-2, 4-5, 8-9, 11-12
     Route: 065
  8. CIPROFLAXACIN [Concomitant]
     Indication: ANTIBIOTIC PROPHYLAXIS
     Route: 065
  9. VALACYCLOVIR HCL [Concomitant]
     Indication: ANTIVIRAL PROPHYLAXIS
     Route: 065
  10. ASPIRIN [Concomitant]
     Indication: THROMBOSIS PROPHYLAXIS
     Route: 065
  11. ENOXAPARIN [Concomitant]
     Indication: THROMBOSIS PROPHYLAXIS
     Route: 065

REACTIONS (1)
  - INFECTION [None]
